FAERS Safety Report 12206449 (Version 1)
Quarter: 2016Q1

REPORT INFORMATION
  Report Type: Spontaneous
  Country: US (occurrence: None)
  Receive Date: 20160323
  Receipt Date: 20160323
  Transmission Date: 20160526
  Serious: Yes (Hospitalization, Disabling)
  Sender: FDA-Public Use
  Company Number: None

PATIENT
  Age: 47 Year
  Sex: Female
  Weight: 90.72 kg

DRUGS (2)
  1. TRAZODONE [Concomitant]
     Active Substance: TRAZODONE HYDROCHLORIDE
  2. CELEBREX [Suspect]
     Active Substance: CELECOXIB
     Indication: ARTHRALGIA
     Route: 048
     Dates: start: 20160123, end: 20160123

REACTIONS (7)
  - Unresponsive to stimuli [None]
  - Feeling abnormal [None]
  - Vertigo [None]
  - Hemiparesis [None]
  - Dizziness [None]
  - Headache [None]
  - Speech disorder [None]

NARRATIVE: CASE EVENT DATE: 20160123
